FAERS Safety Report 6808127-1 (Version None)
Quarter: 2010Q2

REPORT INFORMATION
  Report Type: 
  Country: None (occurrence: None)
  Receive Date: 20100629
  Receipt Date: 20090417
  Transmission Date: 20101027
  Serious: No
  Sender: FDA-Public Use
  Company Number: US-PFIZER INC-2009183964

PATIENT
  Age: 82 Year
  Sex: Male

DRUGS (2)
  1. VIAGRA [Suspect]
     Dosage: 50 MG, UNK
  2. ACETYLSALICYLIC ACID [Suspect]
     Dosage: 81 MG/DAY

REACTIONS (4)
  - BLOOD DISORDER [None]
  - GENITAL HAEMORRHAGE [None]
  - HAEMORRHAGE [None]
  - SKIN DISCOLOURATION [None]
